FAERS Safety Report 9310752 (Version 6)
Quarter: 2013Q4

REPORT INFORMATION
  Report Type: Spontaneous
  Country: JP (occurrence: JP)
  Receive Date: 20130528
  Receipt Date: 20131025
  Transmission Date: 20140711
  Serious: Yes (Hospitalization, Other)
  Sender: FDA-Public Use
  Company Number: JP-AMGEN-JPNSP2013036596

PATIENT
  Age: 47 Year
  Sex: Female
  Weight: 50.7 kg

DRUGS (24)
  1. ENBREL [Suspect]
     Indication: RHEUMATOID ARTHRITIS
     Dosage: 25 MG, WEEKLY
     Route: 058
     Dates: start: 20060719, end: 20100927
  2. ENBREL [Suspect]
     Dosage: 25 MG, WEEKLY
     Route: 058
     Dates: start: 20060719, end: 20100528
  3. RHEUMATREX /00113802/ [Suspect]
     Indication: RHEUMATOID ARTHRITIS
     Dosage: 8 MG, WEEKLY
     Route: 048
     Dates: start: 200312, end: 200612
  4. ABATACEPT [Suspect]
     Indication: RHEUMATOID ARTHRITIS
     Dosage: 500 MG, MONTHLY
     Route: 041
     Dates: start: 20101030, end: 20110926
  5. ABATACEPT [Suspect]
     Dosage: 750 MG, MONTHLY
     Route: 041
     Dates: start: 20110706, end: 20110926
  6. TACROLIMUS [Suspect]
     Indication: RHEUMATOID ARTHRITIS
     Dosage: 2 MG, 1X/DAY
     Route: 048
     Dates: start: 20080109, end: 20100528
  7. ORENCIA [Suspect]
     Indication: RHEUMATOID ARTHRITIS
     Dosage: 500 MG, MONTHLY
     Route: 041
     Dates: start: 20101030, end: 20110705
  8. ORENCIA [Suspect]
     Dosage: 750 MG, MONTHLY
     Route: 041
     Dates: start: 20110706, end: 20110926
  9. PROGRAF [Suspect]
     Indication: RHEUMATOID ARTHRITIS
     Dosage: UNK
     Route: 048
     Dates: start: 20080109
  10. PROGRAF [Suspect]
     Dosage: 1 MG, 1X/DAY
     Route: 048
     Dates: start: 20090826, end: 20100406
  11. PROGRAF [Suspect]
     Dosage: 2 MG, 1X/DAY
     Route: 048
     Dates: start: 20100407, end: 20100528
  12. MIZORIBINE [Concomitant]
     Indication: RHEUMATOID ARTHRITIS
     Dosage: 150 MG, DAILY
     Route: 048
     Dates: start: 20100804, end: 20111007
  13. PREDONINE                          /00016201/ [Concomitant]
     Indication: RHEUMATOID ARTHRITIS
     Dosage: 5 MG, DAILY
     Route: 048
  14. TAKEPRON [Concomitant]
     Dosage: 30 MG, QD
     Route: 048
  15. LOXONIN [Concomitant]
     Dosage: 180 MG, QD
     Route: 048
  16. CRESTOR [Concomitant]
     Dosage: 2.5 MG, QD
     Route: 048
  17. SELTOUCH [Concomitant]
     Dosage: UNK
     Route: 065
  18. BREDININ [Concomitant]
     Indication: RHEUMATOID ARTHRITIS
     Dosage: 150 MG, DAILY
     Route: 048
     Dates: start: 20100804, end: 20110412
  19. BREDININ [Concomitant]
     Dosage: 600 MG, ALTERNATE DAY
     Route: 048
     Dates: start: 20110413, end: 20110607
  20. BREDININ [Concomitant]
     Dosage: 150 MG, 1X/DAY
     Route: 048
     Dates: start: 20110608, end: 20111007
  21. PREDONINE                          /00016201/ [Concomitant]
     Indication: RHEUMATOID ARTHRITIS
     Dosage: 7.5 MG, DAILY
     Route: 048
     Dates: start: 20100721
  22. PREDONINE                          /00016201/ [Concomitant]
     Dosage: 4 MG, FREQEUNCY UNKNOWN
     Route: 048
     Dates: end: 20110607
  23. PREDONINE                          /00016201/ [Concomitant]
     Dosage: 7 MG, FREQEUNCY UNKNOWN
     Route: 048
     Dates: start: 20110608
  24. LIPIDIL [Concomitant]
     Dosage: UNK
     Route: 048
     Dates: end: 20100707

REACTIONS (6)
  - Pleural effusion [Recovering/Resolving]
  - Alopecia [Recovering/Resolving]
  - Primary mediastinal large B-cell lymphoma [Recovering/Resolving]
  - White blood cell count decreased [Recovering/Resolving]
  - Mediastinal mass [Recovering/Resolving]
  - Drug ineffective [Unknown]
